FAERS Safety Report 10186432 (Version 1)
Quarter: 2014Q2

REPORT INFORMATION
  Report Type: Spontaneous
  Country: US (occurrence: US)
  Receive Date: 20140521
  Receipt Date: 20140521
  Transmission Date: 20141212
  Serious: No
  Sender: FDA-Public Use
  Company Number: US-ASTRAZENECA-2013SE89216

PATIENT
  Age: 78 Year
  Sex: Female
  Weight: 55.3 kg

DRUGS (8)
  1. PULMICORT FLEXHALER [Suspect]
     Indication: ASTHMA
     Dosage: 180 MCG, ONE PUFF DAILY
     Route: 055
     Dates: start: 2012
  2. LOSARTAN [Concomitant]
     Indication: BLOOD PRESSURE ABNORMAL
     Route: 048
     Dates: start: 2012
  3. BONIVA [Concomitant]
     Indication: BONE DISORDER
     Dosage: MONTH
     Dates: start: 2012
  4. CLONAZEPAM [Concomitant]
     Indication: ANXIETY
     Route: 048
     Dates: start: 2012
  5. CLONAZEPAM [Concomitant]
     Indication: SLEEP DISORDER
     Route: 048
     Dates: start: 2012
  6. COSOPT [Concomitant]
     Indication: EYE DISORDER
  7. ALPHAGANT [Concomitant]
     Indication: EYE DISORDER
  8. ACULAR [Concomitant]
     Indication: EYE DISORDER

REACTIONS (4)
  - Asthma [Recovered/Resolved]
  - Body height decreased [Unknown]
  - Drug dose omission [Recovered/Resolved]
  - Off label use [Unknown]
